FAERS Safety Report 21711863 (Version 2)
Quarter: 2023Q1

REPORT INFORMATION
  Report Type: Spontaneous
  Country: US (occurrence: US)
  Receive Date: 20221212
  Receipt Date: 20230102
  Transmission Date: 20230417
  Serious: No
  Sender: FDA-Public Use
  Company Number: US-ORGANON-O2211USA001998

PATIENT
  Age: 35 Year
  Sex: Female
  Weight: 122.9 kg

DRUGS (1)
  1. NEXPLANON [Suspect]
     Active Substance: ETONOGESTREL
     Dosage: 1 IMPLANT, RIGHT ARM
     Route: 059
     Dates: start: 2015

REACTIONS (2)
  - Complication associated with device [Unknown]
  - Incorrect product administration duration [Unknown]

NARRATIVE: CASE EVENT DATE: 20180101
